FAERS Safety Report 25780062 (Version 1)
Quarter: 2025Q3

REPORT INFORMATION
  Report Type: Spontaneous
  Country: US (occurrence: US)
  Receive Date: 20250909
  Receipt Date: 20250909
  Transmission Date: 20251021
  Serious: Yes (Other)
  Sender: AMGEN
  Company Number: US-AMGEN-USASP2025174541

PATIENT
  Age: 69 Year
  Sex: Female

DRUGS (8)
  1. BLINATUMOMAB [Suspect]
     Active Substance: BLINATUMOMAB
     Indication: B-cell type acute leukaemia
     Route: 065
  2. ROMIPLOSTIM [Suspect]
     Active Substance: ROMIPLOSTIM
     Indication: Spontaneous splenic rupture
     Route: 065
  3. RITUXIMAB [Suspect]
     Active Substance: RITUXIMAB
     Indication: B-cell type acute leukaemia
     Route: 065
  4. CYCLOPHOSPHAMIDE\CYTARABINE\DEXAMETHASONE\DOXORUBICIN\METHOTREXATE\VIN [Concomitant]
     Active Substance: CYCLOPHOSPHAMIDE\CYTARABINE\DEXAMETHASONE\DOXORUBICIN\METHOTREXATE\VINCRISTINE
     Indication: B-cell type acute leukaemia
  5. METHOTREXATE [Concomitant]
     Active Substance: METHOTREXATE
     Indication: B-cell type acute leukaemia
     Route: 029
  6. Immunoglobulin [Concomitant]
     Indication: Spontaneous splenic rupture
     Route: 040
  7. CEDAZURIDINE\DECITABINE [Concomitant]
     Active Substance: CEDAZURIDINE\DECITABINE
     Indication: Spontaneous splenic rupture
  8. Decitabine;Venetoclax [Concomitant]
     Indication: Spontaneous splenic rupture

REACTIONS (8)
  - Cytopenia [Unknown]
  - Cutaneous vasculitis [Unknown]
  - Malignant transformation [Unknown]
  - Transformation to acute myeloid leukaemia [Unknown]
  - Chronic myelomonocytic leukaemia [Unknown]
  - Spontaneous splenic rupture [Unknown]
  - Off label use [Unknown]
  - Drug effective for unapproved indication [Unknown]
